FAERS Safety Report 5610020-7 (Version None)
Quarter: 2008Q1

REPORT INFORMATION
  Report Type: 
  Country: None (occurrence: None)
  Receive Date: 20080129
  Receipt Date: 20080115
  Transmission Date: 20080703
  Serious: Yes (Other)
  Sender: FDA-Public Use
  Company Number: 2008-170551-NL

PATIENT
  Age: 24 Year
  Sex: Female
  Weight: 95.3 kg

DRUGS (1)
  1. NUVARING [Suspect]
     Dosage: VAGINAL
     Route: 067
     Dates: start: 20071218, end: 20080112

REACTIONS (1)
  - OVARIAN CYST RUPTURED [None]
